FAERS Safety Report 17965539 (Version 2)
Quarter: 2020Q3

REPORT INFORMATION
  Report Type: Spontaneous
  Country: IT (occurrence: IT)
  Receive Date: 20200701
  Receipt Date: 20200702
  Transmission Date: 20201103
  Serious: Yes (Hospitalization)
  Sender: FDA-Public Use
  Company Number: IT-ROCHE-2622631

PATIENT
  Age: 51 Year
  Sex: Male
  Weight: 95 kg

DRUGS (4)
  1. CEFTRIAXONE. [Concomitant]
     Active Substance: CEFTRIAXONE
     Dosage: 28 UNIT NOT REPORTED
     Route: 042
     Dates: start: 20200330
  2. TOCILIZUMAB. [Suspect]
     Active Substance: TOCILIZUMAB
     Indication: COVID-19 PNEUMONIA
     Dosage: 1 VIAL/DAY; DOSE? 800 MG/DAY
     Route: 042
     Dates: start: 20200330, end: 20200331
  3. RITONAVIR. [Concomitant]
     Active Substance: RITONAVIR
     Route: 048
  4. LOPINAVIR [Concomitant]
     Active Substance: LOPINAVIR
     Route: 048

REACTIONS (4)
  - Aspartate aminotransferase increased [Recovered/Resolved]
  - Off label use [Unknown]
  - Alanine aminotransferase increased [Recovered/Resolved]
  - Product use in unapproved indication [Unknown]

NARRATIVE: CASE EVENT DATE: 20200330
